FAERS Safety Report 8761114 (Version 2)
Quarter: 2012Q4

REPORT INFORMATION
  Report Type: 
  Country: US (occurrence: US)
  Receive Date: 20120830
  Receipt Date: 20120830
  Transmission Date: 20130627
  Serious: Yes (Hospitalization, Disabling, Other)
  Sender: FDA-Public Use
  Company Number: US-009507513-1202USA02461

PATIENT

DRUGS (5)
  1. FOSAMAX [Suspect]
     Indication: OSTEOPOROSIS
     Route: 048
     Dates: start: 19980202, end: 20060312
  2. FOSAMAX [Suspect]
     Dosage: 5 mg, qd
     Route: 048
  3. FOSAMAX [Suspect]
     Dosage: 10 mg, qd
     Route: 048
  4. FOSAMAX [Suspect]
     Dosage: 70 mg, QW
     Route: 048
     Dates: start: 20051102
  5. ZOVIRAX [Concomitant]
     Indication: ORAL HERPES
     Dates: start: 1997, end: 2006

REACTIONS (45)
  - Femur fracture [Recovering/Resolving]
  - Deafness neurosensory [Unknown]
  - Low turnover osteopathy [Not Recovered/Not Resolved]
  - Squamous cell carcinoma of skin [Unknown]
  - Orthostatic hypotension [Recovered/Resolved]
  - Fall [Unknown]
  - Anaemia [Unknown]
  - Stress fracture [Unknown]
  - Plantar fasciitis [Unknown]
  - Actinic keratosis [Unknown]
  - Rotator cuff syndrome [Recovering/Resolving]
  - Atrophy [Unknown]
  - Urinary tract infection [Unknown]
  - Bladder spasm [Unknown]
  - Foot deformity [Unknown]
  - Contusion [Unknown]
  - Muscle strain [Unknown]
  - Nodule [Unknown]
  - Impetigo [Unknown]
  - Contusion [Unknown]
  - Muscle strain [Unknown]
  - Gait disturbance [Unknown]
  - Head injury [Unknown]
  - Foot fracture [Unknown]
  - Contusion [Unknown]
  - Bunion [Unknown]
  - Rotator cuff syndrome [Unknown]
  - Ligament sprain [Unknown]
  - Meniscus injury [Unknown]
  - Asthenia [Not Recovered/Not Resolved]
  - Pain in extremity [Unknown]
  - Back pain [Unknown]
  - Pain in extremity [Unknown]
  - Vomiting [Unknown]
  - Nausea [Unknown]
  - Injury [None]
  - Bone fragmentation [None]
  - Fracture displacement [None]
  - Scar [None]
  - Oedema peripheral [None]
  - Foot deformity [None]
  - Foot fracture [None]
  - Myalgia [None]
  - Gait disturbance [None]
  - Bone contusion [None]
